FAERS Safety Report 8741578 (Version 2)
Quarter: 2013Q1

REPORT INFORMATION
  Report Type: Spontaneous
  Country: US (occurrence: US)
  Receive Date: 20120824
  Receipt Date: 20130120
  Transmission Date: 20140127
  Serious: No
  Sender: FDA-Public Use
  Company Number: US-ASTRAZENECA-2011SE57293

PATIENT
  Age: 72 Year
  Sex: Female

DRUGS (5)
  1. SYMBICORT PMDI [Suspect]
     Route: 055
  2. NEXIUM [Suspect]
     Route: 048
  3. CRESTOR [Suspect]
     Route: 048
  4. FLU SHOT [Suspect]
     Route: 065
  5. ZETIA [Suspect]
     Route: 065

REACTIONS (5)
  - Chronic obstructive pulmonary disease [Unknown]
  - Respiratory disorder [Unknown]
  - Malaise [Unknown]
  - Muscle spasms [Unknown]
  - Muscle spasms [Unknown]
